FAERS Safety Report 18557991 (Version 1)
Quarter: 2020Q4

REPORT INFORMATION
  Report Type: Report from Study
  Country: None (occurrence: GB)
  Receive Date: 20201130
  Receipt Date: 20201130
  Transmission Date: 20210114
  Serious: Yes (Other)
  Sender: FDA-Public Use
  Company Number: GB-MDD US OPERATIONS-MDD202011-002347

PATIENT
  Age: 60 Year
  Sex: Male

DRUGS (9)
  1. APOMORPHINE HYDROCHLORIDE [Suspect]
     Active Substance: APOMORPHINE HYDROCHLORIDE
     Indication: PARKINSON^S DISEASE
     Route: 058
     Dates: start: 20181205
  2. SINEMET CONTROLLED RELEASE [Concomitant]
     Indication: PARKINSON^S DISEASE
  3. APOMORPHINE HYDROCHLORIDE [Suspect]
     Active Substance: APOMORPHINE HYDROCHLORIDE
     Route: 058
     Dates: start: 20190508, end: 20201116
  4. LANSOPRAZOLE. [Concomitant]
     Active Substance: LANSOPRAZOLE
     Dosage: NOT PROVIDED
  5. MADOPAR DISPERSIBLE [Concomitant]
     Indication: PARKINSON^S DISEASE
  6. STALEVO [Concomitant]
     Active Substance: CARBIDOPA\ENTACAPONE\LEVODOPA
     Indication: PARKINSON^S DISEASE
  7. ENTACAPONE. [Concomitant]
     Active Substance: ENTACAPONE
     Indication: PARKINSON^S DISEASE
     Dosage: NOT PROVIDED
  8. ENTACAPONE. [Concomitant]
     Active Substance: ENTACAPONE
  9. SELEGILINE [Concomitant]
     Active Substance: SELEGILINE
     Indication: PARKINSON^S DISEASE

REACTIONS (1)
  - Haemolytic anaemia [Recovering/Resolving]
